FAERS Safety Report 20477162 (Version 2)
Quarter: 2022Q1

REPORT INFORMATION
  Report Type: Spontaneous
  Country: US (occurrence: US)
  Receive Date: 20220215
  Receipt Date: 20220301
  Transmission Date: 20220423
  Serious: Yes (Other)
  Sender: FDA-Public Use
  Company Number: US-CELLTRION INC.-2022US001479

PATIENT

DRUGS (9)
  1. TRUXIMA [Suspect]
     Active Substance: RITUXIMAB-ABBS
     Indication: Encephalitis autoimmune
     Dosage: 1 GRAM, EVERY 6 MONTHS
     Dates: start: 202105
  2. TRUXIMA [Suspect]
     Active Substance: RITUXIMAB-ABBS
     Dosage: MOST RECENT TREATMENT WITH TRUXIMA
     Dates: start: 20211216
  3. OXCARBAZEPINE [Concomitant]
     Active Substance: OXCARBAZEPINE
  4. FUROSEMIDE [Concomitant]
     Active Substance: FUROSEMIDE
  5. VASCEPA [Concomitant]
     Active Substance: ICOSAPENT ETHYL
  6. VITAMIN D3 [Concomitant]
     Active Substance: CHOLECALCIFEROL
  7. VITAMINS [Concomitant]
     Active Substance: VITAMINS
  8. MELATONIN [Concomitant]
     Active Substance: MELATONIN
  9. ZYRTEC [Concomitant]
     Active Substance: CETIRIZINE HYDROCHLORIDE

REACTIONS (3)
  - Encephalitis autoimmune [Unknown]
  - Off label use [Unknown]
  - Treatment delayed [Unknown]
